FAERS Safety Report 5643385-0 (Version None)
Quarter: 2008Q1

REPORT INFORMATION
  Report Type: 
  Country: None (occurrence: None)
  Receive Date: 20080228
  Receipt Date: 20080220
  Transmission Date: 20080703
  Serious: Yes (Life-Threatening, Hospitalization)
  Sender: FDA-Public Use
  Company Number: DE-BAUSCH-2008BL000788

PATIENT
  Age: 70 Year
  Sex: Female

DRUGS (2)
  1. GENTAMICIN [Suspect]
     Route: 042
  2. CEFOTIAM HYDROCHLORIDE [Concomitant]
     Route: 042

REACTIONS (4)
  - ANAPHYLACTIC REACTION [None]
  - NAUSEA [None]
  - TACHYCARDIA [None]
  - VERTIGO [None]
